FAERS Safety Report 9971430 (Version 2)
Quarter: 2014Q1

REPORT INFORMATION
  Report Type: Report from Study
  Country: US (occurrence: US)
  Receive Date: 20140306
  Receipt Date: 20140306
  Transmission Date: 20141002
  Serious: No
  Sender: FDA-Public Use
  Company Number: US-ABBVIE-13P-163-1108850-00

PATIENT
  Age: 28 Year
  Sex: Male
  Weight: 62.2 kg

DRUGS (8)
  1. HUMIRA [Suspect]
     Indication: CROHN^S DISEASE
     Dates: start: 20130603, end: 20130603
  2. HUMIRA [Suspect]
     Dates: start: 20130617, end: 20130617
  3. PREDNISONE [Concomitant]
     Indication: CROHN^S DISEASE
     Dosage: TAPERING DOSES
  4. PENTASA [Concomitant]
     Indication: CROHN^S DISEASE
  5. OMEPRAZOLE [Concomitant]
     Indication: CROHN^S DISEASE
  6. MERCAPTOPURINE [Concomitant]
     Indication: CROHN^S DISEASE
  7. FLAGYL [Concomitant]
     Indication: CROHN^S DISEASE
     Dosage: 1000 MG DAILY
  8. CIPRO [Concomitant]
     Indication: CROHN^S DISEASE

REACTIONS (4)
  - Rash [Not Recovered/Not Resolved]
  - Pain in extremity [Not Recovered/Not Resolved]
  - Rash pruritic [Not Recovered/Not Resolved]
  - Adverse drug reaction [Recovered/Resolved]
